FAERS Safety Report 4791768-3 (Version None)
Quarter: 2005Q4

REPORT INFORMATION
  Report Type: 
  Country: None (occurrence: None)
  Receive Date: 20051005
  Receipt Date: 20050922
  Transmission Date: 20060501
  Serious: Yes (Death, Hospitalization, Other)
  Sender: FDA-Public Use
  Company Number: WAES 0509USA03235

PATIENT
  Age: 63 Year
  Sex: Female

DRUGS (10)
  1. DECADRON [Suspect]
     Dosage: PO
     Route: 048
     Dates: start: 20040601
  2. INJ BLINDED THERAPY [Suspect]
     Indication: THROMBOSIS PROPHYLAXIS
     Dosage: SC
     Route: 058
     Dates: start: 20040702, end: 20041214
  3. DIDROCAL [Concomitant]
  4. IMOVANE [Concomitant]
  5. INDERAL LA [Concomitant]
  6. NORVASC [Concomitant]
  7. FERROUS GLUCONATE [Concomitant]
  8. ONDANSETRON [Concomitant]
  9. RANITIDINE HCL [Concomitant]
  10. TEMOZOLOMIDE [Concomitant]

REACTIONS (8)
  - ABASIA [None]
  - CONFUSIONAL STATE [None]
  - HYPERGLYCAEMIA [None]
  - INTESTINAL PERFORATION [None]
  - MUSCULAR WEAKNESS [None]
  - PERITONITIS [None]
  - SEPSIS [None]
  - VISUAL DISTURBANCE [None]
